FAERS Safety Report 10185016 (Version 1)
Quarter: 2014Q2

REPORT INFORMATION
  Report Type: Spontaneous
  Country: DE (occurrence: DE)
  Receive Date: 20140521
  Receipt Date: 20140521
  Transmission Date: 20141212
  Serious: Yes (Congenital Anomaly)
  Sender: FDA-Public Use
  Company Number: GXKR2014DE001948

PATIENT
  Sex: 0

DRUGS (3)
  1. SULFASALAZINE [Suspect]
     Indication: PSORIATIC ARTHROPATHY
     Dosage: 1000 [MG/D ]
     Route: 064
     Dates: start: 20111204, end: 20120914
  2. METHOTREXATE [Suspect]
     Indication: PSORIATIC ARTHROPATHY
     Dosage: 10 [MG/WK ]
     Route: 064
  3. FOLSAN [Concomitant]
     Dosage: 0.4 [MG/D ]
     Route: 064

REACTIONS (3)
  - Ventricular septal defect [Recovered/Resolved with Sequelae]
  - Renal fusion anomaly [Not Recovered/Not Resolved]
  - Pulmonary artery stenosis congenital [Recovered/Resolved]
